FAERS Safety Report 11737908 (Version 2)
Quarter: 2015Q4

REPORT INFORMATION
  Report Type: Spontaneous
  Country: DE (occurrence: DE)
  Receive Date: 20151113
  Receipt Date: 20151209
  Transmission Date: 20160304
  Serious: Yes (Disabling)
  Sender: FDA-Public Use
  Company Number: GXKR2015DE005018

PATIENT

DRUGS (2)
  1. MIRTAZAPIN 1A PHARMA [Suspect]
     Active Substance: MIRTAZAPINE
     Indication: DEPRESSION
     Dosage: 15 MG, QD
     Route: 048
     Dates: start: 20150519, end: 20150521
  2. MIRTAZAPIN 1A PHARMA [Suspect]
     Active Substance: MIRTAZAPINE
     Indication: SLEEP DISORDER

REACTIONS (5)
  - Illusion [Unknown]
  - Impulsive behaviour [Not Recovered/Not Resolved]
  - Mental disability [Unknown]
  - Aggression [Not Recovered/Not Resolved]
  - Sleep disorder [Not Recovered/Not Resolved]

NARRATIVE: CASE EVENT DATE: 20150519
